FAERS Safety Report 6377248-2 (Version None)
Quarter: 2009Q3

REPORT INFORMATION
  Report Type: 
  Country: None (occurrence: None)
  Receive Date: 20090925
  Receipt Date: 20090921
  Transmission Date: 20100115
  Serious: Yes (Other)
  Sender: FDA-Public Use
  Company Number: B0594131A

PATIENT
  Age: 35 Year
  Sex: Female

DRUGS (2)
  1. TYVERB [Suspect]
     Route: 048
     Dates: start: 20090201, end: 20090722
  2. XELODA [Concomitant]
     Route: 048
     Dates: start: 20090201, end: 20090901

REACTIONS (6)
  - ALANINE AMINOTRANSFERASE INCREASED [None]
  - ASPARTATE AMINOTRANSFERASE INCREASED [None]
  - CHROMATURIA [None]
  - FATIGUE [None]
  - HEPATOTOXICITY [None]
  - JAUNDICE [None]
